FAERS Safety Report 18150668 (Version 1)
Quarter: 2020Q3

REPORT INFORMATION
  Report Type: Spontaneous
  Country: US (occurrence: US)
  Receive Date: 20200814
  Receipt Date: 20200814
  Transmission Date: 20201103
  Serious: No
  Sender: FDA-Public Use
  Company Number: US-BAYER-2020-166976

PATIENT
  Sex: Female

DRUGS (3)
  1. MIRENA [Suspect]
     Active Substance: LEVONORGESTREL
     Indication: MENORRHAGIA
  2. HUMIRA [Suspect]
     Active Substance: ADALIMUMAB
  3. MIRENA [Suspect]
     Active Substance: LEVONORGESTREL
     Indication: POLYMENORRHOEA
     Dosage: 20 ?G PER DAY CONTINOUSLY
     Route: 015
     Dates: start: 2018

REACTIONS (2)
  - Pyrexia [None]
  - Infection [None]
